FAERS Safety Report 8322035-9 (Version None)
Quarter: 2012Q2

REPORT INFORMATION
  Report Type: 
  Country: None (occurrence: None)
  Receive Date: 20120430
  Receipt Date: 20120423
  Transmission Date: 20120825
  Serious: Yes (Hospitalization)
  Sender: FDA-Public Use
  Company Number: BR-B.I. PHARMACEUTICALS,INC./RIDGEFIELD-2012-BR-00425BR

PATIENT
  Sex: Female
  Weight: 62.4 kg

DRUGS (13)
  1. PANTOPRAZOLE [Concomitant]
  2. GLUCOFORMIN [Concomitant]
  3. LEVOTHYROXINE SODIUM [Concomitant]
  4. PRAMIPEXOLE DIHYDROCHLORIDE [Suspect]
     Dates: start: 20120330
  5. ASPIRIN [Concomitant]
  6. METICORTEN [Concomitant]
  7. CODEINE SUL TAB [Suspect]
  8. BISACODIL [Concomitant]
  9. LEXAPRO [Concomitant]
  10. ENOXAPARIN SODIUM [Concomitant]
  11. LASIX [Concomitant]
  12. DIOVAN [Concomitant]
  13. RISPERDAL [Suspect]

REACTIONS (8)
  - DEPRESSED LEVEL OF CONSCIOUSNESS [None]
  - HEART RATE DECREASED [None]
  - BLOOD PRESSURE DECREASED [None]
  - TACHYCARDIA [None]
  - PSYCHOMOTOR HYPERACTIVITY [None]
  - OXYGEN SATURATION DECREASED [None]
  - SOMNOLENCE [None]
  - LETHARGY [None]
